FAERS Safety Report 7207479-0 (Version None)
Quarter: 2010Q4

REPORT INFORMATION
  Report Type: 
  Country: None (occurrence: None)
  Receive Date: 20101221
  Receipt Date: 20101214
  Transmission Date: 20110411
  Serious: Yes (Hospitalization)
  Sender: FDA-Public Use
  Company Number: 2010SP064708

PATIENT
  Age: 63 Year
  Sex: Male
  Weight: 113.5 kg

DRUGS (13)
  1. PEGINTERFERON ALFA-2B [Suspect]
     Indication: HEPATITIS C
     Dosage: 150 MCG;QW;SC
     Route: 058
     Dates: start: 20100817
  2. RIBAVIRIN [Suspect]
     Indication: HEPATITIS C
     Dosage: 1400 MG;QD;PO
     Route: 048
     Dates: start: 20100817
  3. BOCEPREVIR [Suspect]
     Dosage: 800 MG; TID; PO
     Route: 048
     Dates: start: 20100914
  4. HYDROMORPHONE HCL [Concomitant]
  5. IBUPROFEN [Concomitant]
  6. LYRICA [Concomitant]
  7. IMOVANE [Concomitant]
  8. CITALOPRAM [Concomitant]
  9. DEXAMETHASONE [Concomitant]
  10. NADOLOL [Concomitant]
  11. ASPIRIN [Concomitant]
  12. EPREX [Concomitant]
  13. RED BLOOD CELLS [Concomitant]

REACTIONS (5)
  - ASCITES [None]
  - BLOOD ALBUMIN DECREASED [None]
  - FLUID RETENTION [None]
  - HYPOPHAGIA [None]
  - SCROTAL SWELLING [None]
